FAERS Safety Report 15692110 (Version 3)
Quarter: 2019Q1

REPORT INFORMATION
  Report Type: Spontaneous
  Country: US (occurrence: US)
  Receive Date: 20181205
  Receipt Date: 20190111
  Transmission Date: 20190417
  Serious: No
  Sender: FDA-Public Use
  Company Number: US-ASTRAZENECA-2018SF50728

PATIENT
  Sex: Male
  Weight: 56.7 kg

DRUGS (1)
  1. PULMICORT FLEXHALER [Suspect]
     Active Substance: BUDESONIDE
     Indication: ASTHMA
     Dosage: 90.0UG AS REQUIRED
     Route: 055

REACTIONS (4)
  - Cough [Unknown]
  - Incorrect dose administered [Unknown]
  - Off label use [Not Recovered/Not Resolved]
  - Device issue [Unknown]
